FAERS Safety Report 13163242 (Version 1)
Quarter: 2017Q1

REPORT INFORMATION
  Report Type: Spontaneous
  Country: US (occurrence: US)
  Receive Date: 20170125
  Receipt Date: 20170125
  Transmission Date: 20170428
  Serious: Yes (Hospitalization, Disabling)
  Sender: FDA-Public Use
  Company Number: None

PATIENT
  Age: 56 Year
  Sex: Female
  Weight: 49.5 kg

DRUGS (4)
  1. UP AND UP MIGRAINE RELIEF [Suspect]
     Active Substance: ACETAMINOPHEN\ASPIRIN\CAFFEINE
     Indication: MIGRAINE
     Dosage: ?          QUANTITY:100 TABLET(S);?
     Route: 048
     Dates: start: 20130101, end: 20170101
  2. ESTROGEN PATCH [Concomitant]
     Active Substance: ESTRADIOL
  3. UP AND UP MIGRAINE RELIEF [Suspect]
     Active Substance: ACETAMINOPHEN\ASPIRIN\CAFFEINE
     Indication: PAIN
     Dosage: ?          QUANTITY:100 TABLET(S);?
     Route: 048
     Dates: start: 20130101, end: 20170101
  4. LORAZEPAM. [Concomitant]
     Active Substance: LORAZEPAM

REACTIONS (3)
  - Secretion discharge [None]
  - Reaction to drug excipients [None]
  - Fungal infection [None]

NARRATIVE: CASE EVENT DATE: 20151201
